FAERS Safety Report 8383693-6 (Version None)
Quarter: 2012Q2

REPORT INFORMATION
  Report Type: 
  Country: None (occurrence: None)
  Receive Date: 20120524
  Receipt Date: 20120119
  Transmission Date: 20120825
  Serious: Yes (Other)
  Sender: FDA-Public Use
  Company Number: AU-ROCHE-1017079

PATIENT
  Sex: Male

DRUGS (6)
  1. SPIRAPRIL HCL [Concomitant]
  2. LUCENTIS [Suspect]
     Indication: AGE-RELATED MACULAR DEGENERATION
     Route: 050
     Dates: start: 20110726, end: 20111122
  3. IRBESARTAN + HYDROCHLOROTHIAZIDE [Concomitant]
     Dosage: 25/300 MG
  4. FLUTICASONE PROPIONATE [Concomitant]
  5. PRAVACHOL [Concomitant]
  6. CLOPIDOGREL [Concomitant]

REACTIONS (1)
  - DRUG HYPERSENSITIVITY [None]
